FAERS Safety Report 17044521 (Version 1)
Quarter: 2019Q4

REPORT INFORMATION
  Report Type: Other
  Country: US (occurrence: US)
  Receive Date: 20191118
  Receipt Date: 20191118
  Transmission Date: 20200122
  Serious: No
  Sender: FDA-Public Use
  Company Number: US-LEADIANT BIOSCIENCES, INC.-2019STPI000470

PATIENT

DRUGS (14)
  1. MELATONIN [Concomitant]
     Active Substance: MELATONIN
  2. ADVIL [IBUPROFEN] [Concomitant]
     Active Substance: IBUPROFEN
  3. CALCIUM [Concomitant]
     Active Substance: CALCIUM
  4. BACTRIM [Concomitant]
     Active Substance: SULFAMETHOXAZOLE\TRIMETHOPRIM
  5. DEPAKOTE [Concomitant]
     Active Substance: DIVALPROEX SODIUM
  6. PAXIL [Concomitant]
     Active Substance: PAROXETINE HYDROCHLORIDE
  7. ASMANEX [Concomitant]
     Active Substance: MOMETASONE FUROATE
  8. METOPROLOL. [Concomitant]
     Active Substance: METOPROLOL
  9. ADAGEN [Concomitant]
     Active Substance: PEGADEMASE BOVINE
  10. MULTI VITAMIN [ASCORBIC ACID;COLECALCIFEROL;NICOTINAMIDE;PANTHENOL;PYR [Concomitant]
  11. MOTRIN [Concomitant]
     Active Substance: IBUPROFEN
  12. REVCOVI [Suspect]
     Active Substance: ELAPEGADEMASE-LVLR
     Indication: COMBINED IMMUNODEFICIENCY
     Dosage: WEEKLY DOSE-12 MILLILITER, 3ML ON MONDAY, 4.5ML ON WEDNESDAY, THEN 4.5ML ON FRIDAY
     Route: 030
     Dates: start: 20190124
  13. CUVITRU [Concomitant]
     Active Substance: HUMAN IMMUNOGLOBULIN G
  14. GAMMAKED [Concomitant]
     Active Substance: HUMAN IMMUNOGLOBULIN G

REACTIONS (1)
  - Sneezing [Not Recovered/Not Resolved]

NARRATIVE: CASE EVENT DATE: 2019
